FAERS Safety Report 5000664-8 (Version None)
Quarter: 2006Q2

REPORT INFORMATION
  Report Type: 
  Country: None (occurrence: None)
  Receive Date: 20060501
  Receipt Date: 20060419
  Transmission Date: 20061013
  Serious: Yes (Other)
  Sender: FDA-Public Use
  Company Number: 2006053642

PATIENT
  Age: 56 Year
  Sex: Female
  Weight: 74.8435 kg

DRUGS (13)
  1. CELEBREX [Suspect]
     Indication: OSTEOARTHRITIS
     Dosage: 200 MG (200 MG, 1 IN 1 D), ORAL
     Route: 048
  2. ADVAIR DISKUS 100/50 [Concomitant]
  3. ASTELIN [Concomitant]
  4. GUAIFENESIN DM (DEXTROMETHORPHAN HYDROBROMIDE, GUAIFENESIN) [Concomitant]
  5. NASONEX [Concomitant]
  6. ALL OTHER THERAPEUTIC PRODUCTS (ALL OTHER THERAPEUTIC PRODUCTS) [Concomitant]
  7. ZYRTEC [Concomitant]
  8. PRILOSEC [Concomitant]
  9. FAMOTIDINE [Concomitant]
  10. LIPITOR [Concomitant]
  11. SYNTHROID [Concomitant]
  12. FOSAMAX [Concomitant]
  13. VESICARE [Concomitant]

REACTIONS (5)
  - BLOOD GLUCOSE INCREASED [None]
  - ELECTROCARDIOGRAM QT CORRECTED INTERVAL PROLONGED [None]
  - GLUCOSE TOLERANCE IMPAIRED [None]
  - HYPERLIPIDAEMIA [None]
  - OSTEOCHONDROSIS [None]
